FAERS Safety Report 15516770 (Version 1)
Quarter: 2018Q4

REPORT INFORMATION
  Report Type: Spontaneous
  Country: BE (occurrence: BE)
  Receive Date: 20181017
  Receipt Date: 20181017
  Transmission Date: 20190205
  Serious: Yes (Hospitalization)
  Sender: FDA-Public Use
  Company Number: BE-HARRIS PHARMACEUTICAL-2018HAR00036

PATIENT
  Age: 71 Year
  Sex: Female

DRUGS (2)
  1. FLUCONAZOLE. [Suspect]
     Active Substance: FLUCONAZOLE
     Indication: ORAL CANDIDIASIS
     Dosage: 200 MG, 1X/DAY
     Route: 065
  2. WARFARIN [Suspect]
     Active Substance: WARFARIN
     Indication: ATRIAL FIBRILLATION
     Dosage: 3.75 MG, 1X/DAY
     Route: 065

REACTIONS (5)
  - Drug interaction [Recovered/Resolved]
  - Spontaneous haematoma [Recovered/Resolved]
  - Overdose [Recovered/Resolved]
  - Coagulopathy [Recovered/Resolved]
  - Pharyngeal stenosis [Recovered/Resolved]
